FAERS Safety Report 7622053-X (Version None)
Quarter: 2011Q3

REPORT INFORMATION
  Report Type: 
  Country: None (occurrence: None)
  Receive Date: 20110720
  Receipt Date: 20110222
  Transmission Date: 20111222
  Serious: Yes (Hospitalization, Other)
  Sender: FDA-Public Use
  Company Number: US-BAYER-2010-004561

PATIENT
  Age: 30 Year
  Sex: Female
  Weight: 72.562 kg

DRUGS (5)
  1. ORTHO TRI-CYCLEN [Concomitant]
     Dosage: 1 DF, QD
     Route: 048
  2. YAZ [Suspect]
     Indication: CONTRACEPTION
     Dosage: UNK
     Dates: start: 20080701, end: 20081001
  3. ULTRACET [Concomitant]
     Indication: PAIN
     Dosage: UNK UNK, Q6WK
     Route: 048
     Dates: start: 20081001
  4. TORADOL [Concomitant]
     Indication: PAIN
     Dosage: 10 MG, PRN
     Dates: start: 20081030
  5. MIRALAX [Concomitant]
     Dosage: 17 G, QD
     Route: 048
     Dates: start: 20081031

REACTIONS (8)
  - GALLBLADDER INJURY [None]
  - EMOTIONAL DISTRESS [None]
  - BILIARY DYSKINESIA [None]
  - ABDOMINAL PAIN [None]
  - CHOLECYSTITIS CHRONIC [None]
  - INJURY [None]
  - ANXIETY [None]
  - PHYSICAL DISABILITY [None]
